FAERS Safety Report 7116256-0 (Version None)
Quarter: 2010Q4

REPORT INFORMATION
  Report Type: 
  Country: None (occurrence: None)
  Receive Date: 20101122
  Receipt Date: 20101115
  Transmission Date: 20110411
  Serious: Yes (Hospitalization)
  Sender: FDA-Public Use
  Company Number: US-JNJFOC-20100706389

PATIENT
  Sex: Female
  Weight: 57.61 kg

DRUGS (7)
  1. TYLENOL (CAPLET) [Suspect]
     Route: 048
  2. TYLENOL (CAPLET) [Suspect]
     Indication: ARTHRALGIA
     Dosage: TAKES 2  IN AM AND 2 IN PM DAILY FOR YESRS; HER DOCTOR IS AWARE
     Route: 048
  3. ANTI-HYPERTENSIVE [Concomitant]
     Indication: HYPERTENSION
     Dosage: UNKNOWN DOSE, TAKES DAILY  FOR YEARS
  4. QUINAPRIL [Concomitant]
     Indication: HYPERTENSION
     Dosage: UNKNOWN DOSE, TAKES DAILY FOR YEARS
  5. ANTI-CHOLESTEROL [Concomitant]
     Indication: BLOOD CHOLESTEROL INCREASED
     Dosage: UNKNOWN DOSE, TAKES ONCE A DAY FOR YEARS
  6. XANAX [Concomitant]
     Indication: INSOMNIA
     Dosage: ONE AS NEEDED AT BEDTIME
  7. CITRACAL [Concomitant]
     Indication: NUTRITIONAL SUPPORT
     Dosage: ONCE A DAY FOR YEARS

REACTIONS (8)
  - ABDOMINAL PAIN UPPER [None]
  - ASTHENIA [None]
  - DIARRHOEA [None]
  - FALL [None]
  - GAIT DISTURBANCE [None]
  - INGUINAL HERNIA [None]
  - PRODUCT QUALITY ISSUE [None]
  - WEIGHT DECREASED [None]
